FAERS Safety Report 21033475 (Version 1)
Quarter: 2022Q3

REPORT INFORMATION
  Report Type: Report from Study
  Country: US (occurrence: US)
  Receive Date: 20220701
  Receipt Date: 20220701
  Transmission Date: 20221027
  Serious: Yes (Other)
  Sender: FDA-Public Use
  Company Number: US-MYLANLABS-2022M1049783

PATIENT
  Age: 25 Year
  Sex: Female

DRUGS (10)
  1. FLUCONAZOLE [Suspect]
     Active Substance: FLUCONAZOLE
     Indication: Acanthamoeba keratitis
     Dosage: UNK
     Route: 048
  2. POLIHEXANIDE HYDROCHLORIDE [Suspect]
     Active Substance: POLIHEXANIDE HYDROCHLORIDE
     Indication: Acanthamoeba keratitis
     Dosage: UNK
     Route: 065
  3. PROPAMIDINE ISETHIONATE [Suspect]
     Active Substance: PROPAMIDINE ISETHIONATE
     Indication: Acanthamoeba keratitis
     Dosage: UNK
     Route: 065
  4. POLYMYXIN B SULFATE\TRIMETHOPRIM [Suspect]
     Active Substance: POLYMYXIN B SULFATE\TRIMETHOPRIM
     Indication: Acanthamoeba keratitis
     Dosage: UNK
     Route: 065
  5. GANCICLOVIR [Concomitant]
     Active Substance: GANCICLOVIR
     Indication: Eye infection bacterial
     Dosage: UNK
     Route: 047
  6. GANCICLOVIR [Concomitant]
     Active Substance: GANCICLOVIR
     Indication: Eye infection viral
  7. OFLOXACIN [Concomitant]
     Active Substance: OFLOXACIN
     Indication: Eye infection bacterial
     Dosage: UNK
     Route: 065
  8. OFLOXACIN [Concomitant]
     Active Substance: OFLOXACIN
     Indication: Eye infection viral
  9. FAMCICLOVIR [Concomitant]
     Active Substance: FAMCICLOVIR
     Indication: Eye infection bacterial
     Dosage: UNK
     Route: 048
  10. FAMCICLOVIR [Concomitant]
     Active Substance: FAMCICLOVIR
     Indication: Eye infection viral

REACTIONS (2)
  - Drug ineffective for unapproved indication [Unknown]
  - Off label use [Unknown]
